FAERS Safety Report 26107350 (Version 1)
Quarter: 2025Q4

REPORT INFORMATION
  Report Type: Spontaneous
  Country: US (occurrence: US)
  Receive Date: 20251201
  Receipt Date: 20251201
  Transmission Date: 20260117
  Serious: Yes (Other)
  Sender: COOPERSURGICAL
  Company Number: US-COOPERSURGICAL, INC.-2025CPS008239

PATIENT
  Age: 31 Year
  Sex: Female
  Weight: 108.84 kg

DRUGS (1)
  1. PARAGARD T 380A [Suspect]
     Active Substance: COPPER
     Indication: Contraception
     Dosage: UNK
     Route: 015
     Dates: start: 20070401

REACTIONS (12)
  - Abortion spontaneous [Recovered/Resolved]
  - Device breakage [Not Recovered/Not Resolved]
  - Foreign body in reproductive tract [Not Recovered/Not Resolved]
  - Complication of device removal [Not Recovered/Not Resolved]
  - Pelvic infection [Not Recovered/Not Resolved]
  - Emotional distress [Unknown]
  - Abnormal uterine bleeding [Not Recovered/Not Resolved]
  - Vaginal infection [Unknown]
  - Pelvic pain [Not Recovered/Not Resolved]
  - Dysmenorrhoea [Unknown]
  - Device use issue [Not Recovered/Not Resolved]
  - Off label use [Unknown]

NARRATIVE: CASE EVENT DATE: 20070401
